FAERS Safety Report 14611114 (Version 2)
Quarter: 2018Q1

REPORT INFORMATION
  Report Type: Spontaneous
  Country: US (occurrence: US)
  Receive Date: 20180308
  Receipt Date: 20180312
  Transmission Date: 20180509
  Serious: No
  Sender: FDA-Public Use
  Company Number: US-009507513-1803USA002521

PATIENT
  Sex: Female

DRUGS (1)
  1. NEXPLANON [Suspect]
     Active Substance: ETONOGESTREL
     Dosage: 68 MG/ ONE IMPLANT EVERY 3 YEARS
     Route: 059
     Dates: start: 201712

REACTIONS (2)
  - Menorrhagia [Recovered/Resolved]
  - Menorrhagia [Unknown]

NARRATIVE: CASE EVENT DATE: 2018
